FAERS Safety Report 5322014-X (Version None)
Quarter: 2007Q2

REPORT INFORMATION
  Report Type: 
  Country: None (occurrence: None)
  Receive Date: 20070508
  Receipt Date: 20070508
  Transmission Date: 20071010
  Serious: Yes (Other)
  Sender: FDA-Public Use
  Company Number: None

PATIENT
  Age: 26 Year
  Sex: Male
  Weight: 81.6475 kg

DRUGS (2)
  1. GABITRIL [Suspect]
     Indication: PANIC ATTACK
     Dosage: PO  MID TO LATE SUMMER 2006
     Route: 048
     Dates: start: 20060101
  2. GABITRIL [Suspect]
     Indication: TREMOR
     Dosage: PO  MID TO LATE SUMMER 2006
     Route: 048
     Dates: start: 20060101

REACTIONS (7)
  - CONVULSION [None]
  - DIZZINESS [None]
  - DYSSTASIA [None]
  - FAECAL INCONTINENCE [None]
  - HEADACHE [None]
  - PRESYNCOPE [None]
  - VISION BLURRED [None]
